FAERS Safety Report 4355739-3 (Version None)
Quarter: 2004Q2

REPORT INFORMATION
  Report Type: 
  Country: None (occurrence: None)
  Receive Date: 20040505
  Receipt Date: 20040423
  Transmission Date: 20050107
  Serious: Yes (Hospitalization)
  Sender: FDA-Public Use
  Company Number: 2004210755GB

PATIENT
  Age: 54 Year
  Sex: Male
  Weight: 69 kg

DRUGS (3)
  1. CELEBREX [Suspect]
     Indication: GASTROINTESTINAL MALFORMATION
     Dosage: 100 MG, BID, ORAL
     Route: 048
     Dates: start: 20040202, end: 20040406
  2. OMEPRAZOLE [Suspect]
     Indication: ABDOMINAL DISCOMFORT
     Dosage: 20 MG, QD, ORAL
     Route: 048
     Dates: start: 20040202, end: 20040406
  3. RANITIDINE [Concomitant]

REACTIONS (6)
  - ASTHENIA [None]
  - DYSURIA [None]
  - GAIT DISTURBANCE [None]
  - INTERVERTEBRAL DISC PROTRUSION [None]
  - SENSORY LOSS [None]
  - SPONDYLOSIS [None]
